FAERS Safety Report 18813030 (Version 1)
Quarter: 2021Q1

REPORT INFORMATION
  Report Type: Spontaneous
  Country: CA (occurrence: CA)
  Receive Date: 20210131
  Receipt Date: 20210131
  Transmission Date: 20210419
  Serious: Yes (Other)
  Sender: FDA-Public Use
  Company Number: CA-PURDUE-USA-2020-0197470

PATIENT
  Sex: Male

DRUGS (1)
  1. OXYCONTIN [Suspect]
     Active Substance: OXYCODONE HYDROCHLORIDE
     Indication: PRODUCT USED FOR UNKNOWN INDICATION
     Dosage: UNK
     Route: 048
     Dates: start: 1996, end: 2016

REACTIONS (9)
  - Sleep apnoea syndrome [Unknown]
  - Somnolence [Unknown]
  - Libido decreased [Unknown]
  - Blood testosterone decreased [Unknown]
  - Drug dependence [None]
  - Sperm concentration decreased [Unknown]
  - Abnormal behaviour [Unknown]
  - Weight increased [None]
  - Blood cholesterol increased [Unknown]
